FAERS Safety Report 8164691-4 (Version None)
Quarter: 2012Q1

REPORT INFORMATION
  Report Type: 
  Country: None (occurrence: None)
  Receive Date: 20120227
  Receipt Date: 20120221
  Transmission Date: 20120608
  Serious: No
  Sender: FDA-Public Use
  Company Number: US-BIOGENIDEC-2011BI026947

PATIENT
  Sex: Female

DRUGS (1)
  1. TYSABRI [Suspect]
     Indication: MULTIPLE SCLEROSIS
     Route: 042
     Dates: start: 20110503

REACTIONS (12)
  - NEURALGIA [None]
  - ERYTHEMA [None]
  - APHASIA [None]
  - HEADACHE [None]
  - ASTHENIA [None]
  - GAIT DISTURBANCE [None]
  - PAIN [None]
  - PRURITUS [None]
  - MUSCULOSKELETAL STIFFNESS [None]
  - PYREXIA [None]
  - FALL [None]
  - HYPOAESTHESIA [None]
